FAERS Safety Report 8025708-0 (Version None)
Quarter: 2012Q1

REPORT INFORMATION
  Report Type: 
  Country: None (occurrence: None)
  Receive Date: 20120105
  Receipt Date: 20120102
  Transmission Date: 20120608
  Serious: No
  Sender: FDA-Public Use
  Company Number: US-B.I. PHARMACEUTICALS,INC./RIDGEFIELD-2012-BP-00078BP

PATIENT
  Sex: Female

DRUGS (1)
  1. ZANTAC [Suspect]

REACTIONS (1)
  - INCORRECT DOSE ADMINISTERED [None]
